FAERS Safety Report 7074315-5 (Version None)
Quarter: 2010Q4

REPORT INFORMATION
  Report Type: 
  Country: None (occurrence: None)
  Receive Date: 20101029
  Receipt Date: 20101015
  Transmission Date: 20110411
  Serious: Yes (Hospitalization)
  Sender: FDA-Public Use
  Company Number: US-BAYER-201010032NA

PATIENT
  Age: 21 Year
  Sex: Female
  Weight: 59 kg

DRUGS (6)
  1. YASMIN [Suspect]
     Indication: ACNE
     Route: 048
     Dates: start: 20040901, end: 20051101
  2. YASMIN [Suspect]
     Dates: start: 20010101, end: 20050101
  3. YASMIN [Suspect]
     Dates: start: 20030101, end: 20080101
  4. ASCORBIC ACID [Concomitant]
     Dosage: 500 MG DAILY
  5. ZYRTEC [Concomitant]
     Indication: HYPERSENSITIVITY
  6. IBUPROFEN [Concomitant]
     Indication: PAIN
     Dosage: TWO 200 MG TABLETS

REACTIONS (1)
  - CEREBRAL VENOUS THROMBOSIS [None]
